FAERS Safety Report 23376412 (Version 1)
Quarter: 2024Q1

REPORT INFORMATION
  Report Type: Spontaneous
  Country: US (occurrence: US)
  Receive Date: 20240108
  Receipt Date: 20240108
  Transmission Date: 20240410
  Serious: No
  Sender: FDA-Public Use
  Company Number: US-SANOFI-01890078

PATIENT
  Age: 60 Year
  Sex: Female

DRUGS (28)
  1. DUPIXENT [Suspect]
     Active Substance: DUPILUMAB
     Indication: Skin disorder
     Dosage: 300 MG, QOW
     Dates: start: 202308
  2. TRULICITY [Concomitant]
     Active Substance: DULAGLUTIDE
  3. NYSTATIN [Concomitant]
     Active Substance: NYSTATIN
  4. FISH OIL\OMEGA-3 FATTY ACIDS [Concomitant]
     Active Substance: FISH OIL\OMEGA-3 FATTY ACIDS
  5. PRILOSEC [Concomitant]
     Active Substance: OMEPRAZOLE MAGNESIUM
  6. LYRICA [Concomitant]
     Active Substance: PREGABALIN
  7. AMBIEN [Concomitant]
     Active Substance: ZOLPIDEM TARTRATE
  8. LEXAPRO [Concomitant]
     Active Substance: ESCITALOPRAM OXALATE
  9. LASIX [Concomitant]
     Active Substance: FUROSEMIDE
  10. INSULIN LISPRO [Concomitant]
     Active Substance: INSULIN LISPRO
  11. CLARITIN [Concomitant]
     Active Substance: LORATADINE
  12. SYNTHROID [Concomitant]
     Active Substance: LEVOTHYROXINE SODIUM
  13. MAGNESIUM OXIDE [Concomitant]
     Active Substance: MAGNESIUM OXIDE
  14. MOBIC [Concomitant]
     Active Substance: MELOXICAM
  15. GLUCOPHAGE [Concomitant]
     Active Substance: METFORMIN HYDROCHLORIDE
  16. TOPROL XL [Concomitant]
     Active Substance: METOPROLOL SUCCINATE
  17. SINGULAIR [Concomitant]
     Active Substance: MONTELUKAST SODIUM
  18. BACTROBAN [Concomitant]
     Active Substance: MUPIROCIN CALCIUM
  19. NIFEDIPINE [Concomitant]
     Active Substance: NIFEDIPINE
  20. ALBUTEROL [Concomitant]
     Active Substance: ALBUTEROL
     Dosage: PRN
  21. ASPIRIN [Concomitant]
     Active Substance: ASPIRIN
  22. BENZOYL PEROXIDE [Concomitant]
     Active Substance: BENZOYL PEROXIDE
  23. DULCOLAX (BISACODYL) [Concomitant]
     Active Substance: BISACODYL
  24. WELLBUTRIN XL [Concomitant]
     Active Substance: BUPROPION HYDROCHLORIDE
  25. VITAMIN D3 [Concomitant]
     Active Substance: CHOLECALCIFEROL
  26. CLOBETASOL [Concomitant]
     Active Substance: CLOBETASOL
  27. CYANOCOBALAMIN [Concomitant]
     Active Substance: CYANOCOBALAMIN
  28. OXYGEN [Concomitant]
     Active Substance: OXYGEN

REACTIONS (12)
  - Tremor [Unknown]
  - Injection site haemorrhage [Unknown]
  - Peripheral swelling [Unknown]
  - Lymphoedema [Unknown]
  - Dyspnoea [Unknown]
  - Abdominal pain [Unknown]
  - Oedema peripheral [Unknown]
  - Dehydration [Unknown]
  - Hyperglycaemia [Unknown]
  - Gastric dilatation [Unknown]
  - Weight increased [Unknown]
  - Product use in unapproved indication [Unknown]

NARRATIVE: CASE EVENT DATE: 20230101
